FAERS Safety Report 6893184-7 (Version None)
Quarter: 2010Q3

REPORT INFORMATION
  Report Type: 
  Country: None (occurrence: None)
  Receive Date: 20100731
  Receipt Date: 20090623
  Transmission Date: 20110219
  Serious: No
  Sender: FDA-Public Use
  Company Number: US-PFIZER INC-2009199527

PATIENT
  Sex: Male
  Weight: 81.6 kg

DRUGS (3)
  1. AMLODIPINE BESYLATE [Suspect]
     Indication: BLOOD PRESSURE ABNORMAL
  2. NORVASC [Concomitant]
     Indication: BLOOD PRESSURE
  3. ACETYLSALICYLIC ACID [Concomitant]
     Dosage: UNK

REACTIONS (2)
  - CHEST DISCOMFORT [None]
  - HYPERTENSION [None]
